FAERS Safety Report 11180377 (Version 1)
Quarter: 2015Q2

REPORT INFORMATION
  Report Type: Spontaneous
  Country: JP (occurrence: None)
  Receive Date: 20150609
  Receipt Date: 20150609
  Transmission Date: 20150821
  Serious: Yes (Hospitalization, Other)
  Sender: FDA-Public Use
  Company Number: JP2015JPN074350

PATIENT

DRUGS (1)
  1. AZT [Suspect]
     Active Substance: ZIDOVUDINE

REACTIONS (1)
  - Intestinal obstruction [None]
